FAERS Safety Report 4359762-4 (Version None)
Quarter: 2004Q2

REPORT INFORMATION
  Report Type: 
  Country: None (occurrence: None)
  Receive Date: 20040518
  Receipt Date: 20040506
  Transmission Date: 20050107
  Serious: Yes (Other)
  Sender: FDA-Public Use
  Company Number: US-BRISTOL-MYERS SQUIBB COMPANY-12587317

PATIENT

DRUGS (2)
  1. VIDEX [Suspect]
  2. KALETRA [Suspect]

REACTIONS (1)
  - PANCREATITIS [None]
